FAERS Safety Report 11251236 (Version 1)
Quarter: 2015Q3

REPORT INFORMATION
  Report Type: Spontaneous
  Country: GB (occurrence: GB)
  Receive Date: 20150708
  Receipt Date: 20150708
  Transmission Date: 20151125
  Serious: Yes (Life-Threatening)
  Sender: FDA-Public Use
  Company Number: GB-TEVA-576073ACC

PATIENT
  Age: 34 Year
  Sex: Female
  Weight: 118 kg

DRUGS (4)
  1. CYCLIZINE [Concomitant]
     Active Substance: CYCLIZINE
     Dosage: 1 THREE TIMES A DAY AS NECESSARY
     Dates: start: 20150610
  2. PROCHLORPERAZINE. [Concomitant]
     Active Substance: PROCHLORPERAZINE
     Dosage: 3 DOSAGE FORMS DAILY;
     Dates: start: 20150604
  3. LEVOTHYROXINE. [Concomitant]
     Active Substance: LEVOTHYROXINE
     Dosage: 1 DOSAGE FORMS DAILY; IN MORNING
     Dates: start: 20141205
  4. METOCLOPRAMIDE. [Suspect]
     Active Substance: METOCLOPRAMIDE
     Route: 042

REACTIONS (1)
  - Anaphylactic reaction [Recovered/Resolved]

NARRATIVE: CASE EVENT DATE: 20150621
